FAERS Safety Report 8263720-7 (Version None)
Quarter: 2012Q2

REPORT INFORMATION
  Report Type: 
  Country: None (occurrence: None)
  Receive Date: 20120405
  Receipt Date: 20120326
  Transmission Date: 20120825
  Serious: Yes (Other)
  Sender: FDA-Public Use
  Company Number: AU-ROCHE-1055275

PATIENT
  Sex: Female

DRUGS (4)
  1. ATROVENT [Concomitant]
  2. SYMBICORT [Concomitant]
  3. XOLAIR [Suspect]
     Indication: ASTHMA
     Dosage: FORTNIGHT
     Route: 058
     Dates: start: 20111006
  4. BRICANYL [Concomitant]

REACTIONS (1)
  - LIVER FUNCTION TEST ABNORMAL [None]
